FAERS Safety Report 7292596-X (Version None)
Quarter: 2011Q1

REPORT INFORMATION
  Report Type: 
  Country: None (occurrence: None)
  Receive Date: 20110215
  Receipt Date: 20110215
  Transmission Date: 20110831
  Serious: Yes (Life-Threatening, Congenital Anomaly, Other)
  Sender: FDA-Public Use
  Company Number: None

PATIENT
  Age: 39 Year
  Sex: Female
  Weight: 71.6683 kg

DRUGS (1)
  1. ALCOHOL SWAB 70% ISOPROPYL ALCOHOL TRIAD [Suspect]
     Indication: INJECTION
     Dosage: 2 SWABS TWICE/DAY
     Dates: start: 20100905, end: 20101105

REACTIONS (5)
  - PRODUCT CONTAMINATION MICROBIAL [None]
  - DRUG EXPOSURE DURING PREGNANCY [None]
  - PRODUCT QUALITY ISSUE [None]
  - SKIN IRRITATION [None]
  - INTRA-UTERINE DEATH [None]
